FAERS Safety Report 12406469 (Version 3)
Quarter: 2016Q3

REPORT INFORMATION
  Report Type: Spontaneous
  Country: PL (occurrence: PL)
  Receive Date: 20160526
  Receipt Date: 20160725
  Transmission Date: 20161109
  Serious: Yes (Hospitalization)
  Sender: FDA-Public Use
  Company Number: PL-TEVA-660665ACC

PATIENT
  Age: 73 Year
  Sex: Female
  Weight: 68 kg

DRUGS (3)
  1. CALCII FOLINAS [Suspect]
     Active Substance: LEUCOVORIN
     Indication: COLON CANCER
     Dosage: DOSE: 166; DOSE UNIT: NOT SPECIFIED
     Route: 042
     Dates: start: 20160325, end: 20160326
  2. IRINOTECAN [Suspect]
     Active Substance: IRINOTECAN
     Indication: COLON CANCER
     Dosage: DOSE: 300; DOSE UNIT: NOT SPECIFIED
     Route: 042
     Dates: start: 20160325, end: 20160325
  3. FLUOROURACIL. [Suspect]
     Active Substance: FLUOROURACIL
     Indication: COLON CANCER
     Dosage: DOSE: 998; DOSE UNIT: NOT SPECIFIED
     Route: 042
     Dates: start: 20160325, end: 20160326

REACTIONS (1)
  - Neutropenia [Recovered/Resolved]

NARRATIVE: CASE EVENT DATE: 20160406
